FAERS Safety Report 4681726-1 (Version None)
Quarter: 2005Q2

REPORT INFORMATION
  Report Type: 
  Country: None (occurrence: None)
  Receive Date: 20050603
  Receipt Date: 20050310
  Transmission Date: 20051028
  Serious: Yes (Hospitalization, Disabling)
  Sender: FDA-Public Use
  Company Number: US-MERCK-0503USA01892

PATIENT
  Age: 58 Year
  Sex: Male
  Weight: 93 kg

DRUGS (11)
  1. VIOXX [Suspect]
     Indication: ARTHRALGIA
     Route: 048
     Dates: start: 20001201, end: 20040827
  2. ZIAC [Concomitant]
     Indication: HYPERTENSION
     Route: 065
     Dates: start: 19950604, end: 20040624
  3. ASPIRIN [Concomitant]
     Route: 065
     Dates: start: 20020101
  4. TYLENOL (CAPLET) [Concomitant]
     Route: 065
     Dates: start: 19680101
  5. PAMELOR [Concomitant]
     Indication: DEPRESSION
     Route: 065
  6. BUSPAR [Concomitant]
     Indication: DEPRESSION
     Route: 065
  7. SKELAXIN [Concomitant]
     Route: 065
  8. ZANAFLEX [Concomitant]
     Route: 065
  9. HYDROCHLOROTHIAZIDE AND BISOPROLOL FUMARATE [Concomitant]
     Route: 065
  10. DEXAMETHASONE [Concomitant]
     Route: 065
  11. PREVACID [Concomitant]
     Route: 065

REACTIONS (4)
  - ACUTE CORONARY SYNDROME [None]
  - EMOTIONAL DISTRESS [None]
  - GASTRITIS [None]
  - MYOCARDIAL INFARCTION [None]
